FAERS Safety Report 22591297 (Version 1)
Quarter: 2023Q2

REPORT INFORMATION
  Report Type: Spontaneous
  Country: CA (occurrence: CA)
  Receive Date: 20230612
  Receipt Date: 20230612
  Transmission Date: 20230722
  Serious: Yes (Other)
  Sender: FDA-Public Use
  Company Number: CA-PFIZER INC-202300215024

PATIENT
  Age: 54 Year
  Sex: Female

DRUGS (1)
  1. TRASTUZUMAB [Suspect]
     Active Substance: TRASTUZUMAB
     Indication: HER2 positive breast cancer
     Dosage: 303.0 MG, EVERY 3 WEEKS
     Route: 042

REACTIONS (3)
  - Supraventricular tachycardia [Unknown]
  - Malaise [Unknown]
  - Inappropriate schedule of product administration [Unknown]
